FAERS Safety Report 8119931-4 (Version None)
Quarter: 2011Q4

REPORT INFORMATION
  Report Type: 
  Country: None (occurrence: None)
  Receive Date: 20111227
  Receipt Date: 20111004
  Transmission Date: 20120403
  Serious: No
  Sender: FDA-Public Use
  Company Number: PHHY2011US33858

PATIENT
  Age: 32 Year
  Sex: Male
  Weight: 73.9 kg

DRUGS (6)
  1. GILENYA [Suspect]
     Indication: RELAPSING-REMITTING MULTIPLE SCLEROSIS
     Dosage: 0.5 MG, DAILY, ORAL, 0.5 MG, DAILY, ORAL
     Route: 048
     Dates: start: 20110617
  2. GILENYA [Suspect]
     Indication: RELAPSING-REMITTING MULTIPLE SCLEROSIS
     Dosage: 0.5 MG, DAILY, ORAL, 0.5 MG, DAILY, ORAL
     Route: 048
     Dates: start: 20110323
  3. GILENYA [Suspect]
  4. MORPHINE [Concomitant]
  5. LYRICA [Concomitant]
  6. XANAX [Concomitant]

REACTIONS (4)
  - PAIN [None]
  - BACK PAIN [None]
  - FATIGUE [None]
  - FIBROMYALGIA [None]
